FAERS Safety Report 5258217-2 (Version None)
Quarter: 2007Q1

REPORT INFORMATION
  Report Type: 
  Country: None (occurrence: None)
  Receive Date: 20070308
  Receipt Date: 20070228
  Transmission Date: 20070707
  Serious: Yes (Hospitalization)
  Sender: FDA-Public Use
  Company Number: JP-SP-2006-03603

PATIENT
  Age: 69 Year
  Sex: Male

DRUGS (3)
  1. IMMUCYST [Suspect]
     Indication: BLADDER CANCER
     Route: 043
     Dates: start: 20060303, end: 20060509
  2. IMMUCYST [Suspect]
     Route: 043
     Dates: start: 20060303, end: 20060509
  3. LEVOFLOXACIN [Concomitant]
     Route: 048
     Dates: start: 20060227, end: 20060314

REACTIONS (2)
  - PROSTATITIS [None]
  - WHITE BLOOD CELLS URINE POSITIVE [None]
